FAERS Safety Report 22644005 (Version 1)
Quarter: 2023Q2

REPORT INFORMATION
  Report Type: Spontaneous
  Country: ES (occurrence: ES)
  Receive Date: 20230627
  Receipt Date: 20230627
  Transmission Date: 20230722
  Serious: Yes (Other)
  Sender: FDA-Public Use
  Company Number: ES-AEMPS-1383318

PATIENT
  Age: 79 Year
  Sex: Male

DRUGS (3)
  1. LINEZOLID [Suspect]
     Active Substance: LINEZOLID
     Indication: Empyema
     Dosage: UNK
     Route: 042
     Dates: start: 20221230, end: 20230109
  2. PIPERACILLIN SODIUM\TAZOBACTAM SODIUM [Concomitant]
     Active Substance: PIPERACILLIN SODIUM\TAZOBACTAM SODIUM
     Indication: Empyema
     Dosage: UNK
     Route: 042
     Dates: start: 20221216, end: 20221222
  3. CLOXACILLIN [Concomitant]
     Active Substance: CLOXACILLIN
     Indication: Empyema
     Dosage: UNK
     Route: 042
     Dates: start: 20221222, end: 20221230

REACTIONS (1)
  - Cutaneous vasculitis [Recovering/Resolving]

NARRATIVE: CASE EVENT DATE: 20230105
